FAERS Safety Report 24012296 (Version 6)
Quarter: 2024Q3

REPORT INFORMATION
  Report Type: Spontaneous
  Country: US (occurrence: US)
  Receive Date: 20240625
  Receipt Date: 20240709
  Transmission Date: 20241016
  Serious: Yes (Death)
  Sender: ROCHE
  Company Number: US-ROCHE-10000007826

PATIENT
  Age: 80 Year
  Sex: Female
  Weight: 52.16 kg

DRUGS (3)
  1. CATHFLO ACTIVASE [Suspect]
     Active Substance: ALTEPLASE
     Indication: Thrombosis
     Route: 042
     Dates: start: 20240522
  2. NPLATE [Concomitant]
     Active Substance: ROMIPLOSTIM
     Indication: Platelet count decreased
  3. METFORMIN [Concomitant]
     Active Substance: METFORMIN HYDROCHLORIDE
     Indication: Diabetes mellitus

REACTIONS (3)
  - Fatigue [Not Recovered/Not Resolved]
  - Memory impairment [Not Recovered/Not Resolved]
  - Road traffic accident [Fatal]

NARRATIVE: CASE EVENT DATE: 20240527
